FAERS Safety Report 15376953 (Version 3)
Quarter: 2025Q2

REPORT INFORMATION
  Report Type: Spontaneous
  Country: US (occurrence: US)
  Receive Date: 20180913
  Receipt Date: 20250402
  Transmission Date: 20250716
  Serious: No
  Sender: TAKEDA
  Company Number: US-TAKEDA-2018TUS027123

PATIENT
  Sex: Female
  Weight: 82 kg

DRUGS (4)
  1. ENTYVIO [Suspect]
     Active Substance: VEDOLIZUMAB
     Indication: Crohn^s disease
  2. ENTYVIO [Suspect]
     Active Substance: VEDOLIZUMAB
     Dates: start: 20180806, end: 20180806
  3. ENTYVIO [Suspect]
     Active Substance: VEDOLIZUMAB
     Dosage: 300 MILLIGRAM, Q6WEEKS
  4. BENTYL [Concomitant]
     Active Substance: DICYCLOMINE HYDROCHLORIDE
     Indication: Muscle spasms
     Dosage: 20 MILLIGRAM, QID

REACTIONS (5)
  - Therapeutic reaction time decreased [Unknown]
  - Product storage error [Unknown]
  - Product temperature excursion issue [Unknown]
  - Product distribution issue [Unknown]
  - Off label use [Unknown]
